FAERS Safety Report 5532166-4 (Version None)
Quarter: 2007Q4

REPORT INFORMATION
  Report Type: 
  Country: None (occurrence: None)
  Receive Date: 20071203
  Receipt Date: 20071120
  Transmission Date: 20080405
  Serious: Yes (Hospitalization)
  Sender: FDA-Public Use
  Company Number: AT-ASTRAZENECA-2007PK02495

PATIENT
  Age: 51 Year
  Sex: Female
  Weight: 43 kg

DRUGS (4)
  1. ZOMIG [Suspect]
     Dosage: ONCE A WEEK
  2. EFFORTIL [Interacting]
     Indication: HYPOTENSION
     Dosage: TWO TO THREE TIMES PER WEEK
  3. AGILAN [Interacting]
     Indication: HYPOTENSION
     Dosage: TWO TO THREE TIMES PER WEEK
  4. AMPHODYN [Interacting]
     Indication: HYPOTENSION
     Dosage: TWO TO THREE TIMES PER WEEK

REACTIONS (3)
  - CIRCULATORY COLLAPSE [None]
  - DRUG INTERACTION [None]
  - VERTIGO [None]
